FAERS Safety Report 10247550 (Version 2)
Quarter: 2014Q3

REPORT INFORMATION
  Report Type: Spontaneous
  Country: ES (occurrence: ES)
  Receive Date: 20140619
  Receipt Date: 20140703
  Transmission Date: 20150326
  Serious: Yes (Other)
  Sender: FDA-Public Use
  Company Number: ES-GILEAD-2014-0106248

PATIENT
  Age: 92 Year
  Sex: Male

DRUGS (15)
  1. AVIDART [Concomitant]
     Dosage: UNK, QD
  2. ALMAGATE [Concomitant]
     Active Substance: ALMAGATE
     Dosage: UNK
  3. IRON [Concomitant]
     Active Substance: IRON
     Indication: IRON DEFICIENCY
     Dosage: UNK
     Dates: start: 20140430
  4. EMCONCOR [Concomitant]
     Active Substance: BISOPROLOL FUMARATE
     Dosage: 1.25 MG, QD
     Route: 048
  5. DUPHALAC [Concomitant]
     Active Substance: LACTULOSE
     Dosage: UNK
  6. ORFIDAL [Concomitant]
     Active Substance: LORAZEPAM
     Dosage: UNK
  7. DUMIROX [Concomitant]
     Dosage: 100 MG, QD
     Route: 048
  8. OMNIC OCAS [Concomitant]
     Active Substance: TAMSULOSIN HYDROCHLORIDE
     Dosage: UNK, QD
  9. ENALAPRIL [Concomitant]
     Active Substance: ENALAPRIL
     Dosage: 2.5 MG, QD
     Route: 048
  10. RANOLAZINE [Suspect]
     Active Substance: RANOLAZINE
     Indication: ANGINA PECTORIS
     Dosage: 375 MG, BID
     Route: 048
     Dates: start: 20140508, end: 20140510
  11. ZARATOR                            /01326102/ [Concomitant]
     Dosage: 80 MG, QD
     Route: 048
  12. NITROPLAST [Concomitant]
     Dosage: 10 MG, QD
     Route: 062
  13. ADIRO [Concomitant]
     Active Substance: ASPIRIN
     Dosage: 100 MG, QD
     Route: 048
  14. PANTOPRAZOLE [Concomitant]
     Active Substance: PANTOPRAZOLE SODIUM
     Dosage: 40 MG, QD
     Route: 048
  15. OPONAF [Concomitant]
     Dosage: UNK, BID

REACTIONS (2)
  - Angina pectoris [Recovered/Resolved]
  - Disease complication [Recovered/Resolved]

NARRATIVE: CASE EVENT DATE: 20140508
